FAERS Safety Report 11497845 (Version 3)
Quarter: 2016Q1

REPORT INFORMATION
  Report Type: Spontaneous
  Country: CH (occurrence: CH)
  Receive Date: 20150911
  Receipt Date: 20160112
  Transmission Date: 20160525
  Serious: Yes (Death, Hospitalization, Other)
  Sender: FDA-Public Use
  Company Number: CH-BAYER-2015-414906

PATIENT
  Age: 68 Year
  Sex: Male

DRUGS (4)
  1. LUCRIN [Concomitant]
     Active Substance: LEUPROLIDE ACETATE
  2. XOFIGO [Suspect]
     Active Substance: RADIUM RA-223 DICHLORIDE
  3. ZYTIGA [Concomitant]
     Active Substance: ABIRATERONE ACETATE
  4. ZOMETA [Concomitant]
     Active Substance: ZOLEDRONIC ACID

REACTIONS (6)
  - Renal failure [Fatal]
  - Hyperglycaemia [None]
  - General physical health deterioration [None]
  - Metabolic function test abnormal [None]
  - Sepsis [Fatal]
  - Atrial fibrillation [None]
